FAERS Safety Report 10856920 (Version 1)
Quarter: 2015Q1

REPORT INFORMATION
  Report Type: Spontaneous
  Country: US (occurrence: US)
  Receive Date: 20150223
  Receipt Date: 20150223
  Transmission Date: 20150721
  Serious: No
  Sender: FDA-Public Use
  Company Number: US-CELGENEUS-163-21880-14084166

PATIENT
  Age: 74 Year
  Sex: Female
  Weight: 68.1 kg

DRUGS (4)
  1. AREDIA [Concomitant]
     Active Substance: PAMIDRONATE DISODIUM
     Route: 041
     Dates: start: 20120202
  2. REVLIMID [Suspect]
     Active Substance: LENALIDOMIDE
     Indication: PLASMA CELL MYELOMA
     Dosage: 25 MILLIGRAM
     Route: 048
     Dates: start: 20140120
  3. VELCADE [Suspect]
     Active Substance: BORTEZOMIB
     Indication: PLASMA CELL MYELOMA
     Route: 041
     Dates: start: 201202, end: 20130725
  4. DECADRON [Concomitant]
     Active Substance: DEXAMETHASONE
     Indication: BLOOD CALCIUM INCREASED
     Route: 065

REACTIONS (1)
  - Skin discolouration [Recovering/Resolving]

NARRATIVE: CASE EVENT DATE: 201407
